FAERS Safety Report 8518617-1 (Version None)
Quarter: 2012Q3

REPORT INFORMATION
  Report Type: 
  Country: None (occurrence: None)
  Receive Date: 20120718
  Receipt Date: 20110624
  Transmission Date: 20120928
  Serious: Yes (Other)
  Sender: FDA-Public Use
  Company Number: US-BRISTOL-MYERS SQUIBB COMPANY-15754526

PATIENT
  Age: 74 Year
  Sex: Female
  Weight: 63 kg

DRUGS (13)
  1. URSODIOL [Concomitant]
  2. CALCIUM [Concomitant]
  3. COUMADIN [Suspect]
     Indication: THROMBOSIS
     Dosage: 7.5MG ON TUESDAY, THURSDAY, SATURDAY AND SUNDAY,5MG ON MON,WED AND FRI
     Route: 048
     Dates: start: 20061201
  4. PLAVIX [Concomitant]
  5. LIPITOR [Concomitant]
  6. OMEPRAZOLE [Concomitant]
  7. CELLCEPT [Concomitant]
  8. VITAMIN D [Concomitant]
  9. COUMADIN [Suspect]
     Indication: MYOCARDIAL INFARCTION
     Dosage: 7.5MG ON TUESDAY, THURSDAY, SATURDAY AND SUNDAY,5MG ON MON,WED AND FRI
     Route: 048
     Dates: start: 20061201
  10. ATENOLOL [Concomitant]
  11. NITROGLYCERIN [Concomitant]
  12. AMBIEN [Concomitant]
  13. LISINOPRIL [Concomitant]

REACTIONS (1)
  - INTERNATIONAL NORMALISED RATIO FLUCTUATION [None]
